FAERS Safety Report 8205434-5 (Version None)
Quarter: 2012Q1

REPORT INFORMATION
  Report Type: 
  Country: None (occurrence: None)
  Receive Date: 20120313
  Receipt Date: 20120306
  Transmission Date: 20120608
  Serious: Yes (Hospitalization, Other)
  Sender: FDA-Public Use
  Company Number: DE-US-EMD SERONO, INC.-7107288

PATIENT
  Sex: Female

DRUGS (3)
  1. REBIF [Suspect]
     Indication: MULTIPLE SCLEROSIS
     Route: 058
     Dates: start: 20111101, end: 20120117
  2. METHYLPREDNISOLONE [Suspect]
     Route: 042
     Dates: start: 20111111, end: 20111115
  3. METHYLPREDNISOLONE [Suspect]
     Indication: PRODUCT USED FOR UNKNOWN INDICATION
     Route: 042
     Dates: start: 20111029, end: 20111103

REACTIONS (2)
  - HEPATIC ENZYME INCREASED [None]
  - AUTOIMMUNE HEPATITIS [None]
